FAERS Safety Report 8911251 (Version 1)
Quarter: 2012Q4

REPORT INFORMATION
  Report Type: 
  Country: US (occurrence: US)
  Receive Date: 20121116
  Receipt Date: 20121116
  Transmission Date: 20130627
  Serious: No
  Sender: FDA-Public Use
  Company Number: US-GLAXOSMITHKLINE-A0993740A

PATIENT
  Age: 68 Year
  Sex: Female

DRUGS (4)
  1. VOTRIENT [Suspect]
     Indication: LUNG NEOPLASM MALIGNANT
     Dosage: 4TAB Per day
     Route: 065
     Dates: start: 2012
  2. BLOOD PRESSURE MEDICATION [Concomitant]
     Indication: BLOOD PRESSURE
  3. UNSPECIFIED MEDICATION [Concomitant]
     Indication: GOUT
  4. THYROID MEDICATION [Concomitant]
     Indication: THYROID DISORDER

REACTIONS (3)
  - Muscle spasms [Not Recovered/Not Resolved]
  - Fatigue [Not Recovered/Not Resolved]
  - Diarrhoea [Unknown]
